FAERS Safety Report 7671042-8 (Version None)
Quarter: 2011Q3

REPORT INFORMATION
  Report Type: 
  Country: None (occurrence: None)
  Receive Date: 20110809
  Receipt Date: 20110728
  Transmission Date: 20111222
  Serious: No
  Sender: FDA-Public Use
  Company Number: FR-JNJFOC-20110501957

PATIENT
  Sex: Male
  Weight: 67 kg

DRUGS (1)
  1. DURAGESIC-100 [Suspect]
     Indication: PROCEDURAL PAIN
     Route: 062
     Dates: start: 20110401

REACTIONS (3)
  - OFF LABEL USE [None]
  - INAPPROPRIATE SCHEDULE OF DRUG ADMINISTRATION [None]
  - NAUSEA [None]
